FAERS Safety Report 6064051-6 (Version None)
Quarter: 2009Q1

REPORT INFORMATION
  Report Type: 
  Country: None (occurrence: None)
  Receive Date: 20090130
  Receipt Date: 20090123
  Transmission Date: 20090719
  Serious: Yes (Other)
  Sender: FDA-Public Use
  Company Number: CIO09001814

PATIENT
  Sex: Female

DRUGS (1)
  1. CREST TARTAR PROTECTION WHITENING TOOTHPASTE, COOL MINT FLAVOR (SODIUM [Suspect]
     Dosage: INTRAORAL
     Route: 048

REACTIONS (2)
  - RESPIRATORY ARREST [None]
  - THROAT TIGHTNESS [None]
